FAERS Safety Report 23942060 (Version 1)
Quarter: 2024Q2

REPORT INFORMATION
  Report Type: Spontaneous
  Country: US (occurrence: None)
  Receive Date: 20240604
  Receipt Date: 20240604
  Transmission Date: 20240716
  Serious: Yes (Life-Threatening, Hospitalization, Other)
  Sender: FDA-Public Use
  Company Number: None

PATIENT
  Age: 8 Year
  Sex: Male
  Weight: 27.1 kg

DRUGS (6)
  1. FLUTICASONE PROPIONATE\SALMETEROL XINAFOATE [Suspect]
     Active Substance: FLUTICASONE PROPIONATE\SALMETEROL XINAFOATE
     Indication: Asthma
     Dosage: FREQUENCY : TWICE A DAY;?
     Route: 055
     Dates: start: 20220228
  2. FLUTICASONE [Suspect]
     Active Substance: FLUTICASONE
     Dates: start: 20230921
  3. azelastine nasal [Concomitant]
  4. azithromycin TIW [Concomitant]
     Dates: start: 20231229
  5. atrovent PRN [Concomitant]
  6. MONTELUKAST [Concomitant]
     Active Substance: MONTELUKAST SODIUM

REACTIONS (5)
  - Hypovolaemic shock [None]
  - Sepsis [None]
  - Hypoglycaemia [None]
  - Secondary adrenocortical insufficiency [None]
  - Respiratory tract infection [None]
